FAERS Safety Report 5684732-3 (Version None)
Quarter: 2008Q1

REPORT INFORMATION
  Report Type: 
  Country: None (occurrence: None)
  Receive Date: 20080328
  Receipt Date: 20070807
  Transmission Date: 20080703
  Serious: Yes (Hospitalization)
  Sender: FDA-Public Use
  Company Number: US-BRISTOL-MYERS SQUIBB COMPANY-13871553

PATIENT
  Age: 57 Year
  Sex: Female

DRUGS (5)
  1. ERBITUX [Suspect]
     Indication: TONSIL CANCER
     Dosage: DRUG WAS GIVEN AGAIN ON 17/JUL/2007 AND STOPPED IMMEDIATELY
     Route: 042
     Dates: start: 20070716, end: 20070716
  2. BENADRYL [Concomitant]
     Indication: PREMEDICATION
  3. ATIVAN [Concomitant]
     Indication: PREMEDICATION
  4. CIMETIDINE [Concomitant]
     Indication: PREMEDICATION
  5. DECADRON [Concomitant]
     Indication: PREMEDICATION

REACTIONS (6)
  - EAR DISORDER [None]
  - FEELING ABNORMAL [None]
  - INFUSION RELATED REACTION [None]
  - LIP SWELLING [None]
  - PRURITUS [None]
  - URTICARIA [None]
